FAERS Safety Report 8202663-1 (Version None)
Quarter: 2012Q1

REPORT INFORMATION
  Report Type: 
  Country: None (occurrence: None)
  Receive Date: 20120312
  Receipt Date: 20120305
  Transmission Date: 20120608
  Serious: Yes (Other)
  Sender: FDA-Public Use
  Company Number: PHHY2012MY019375

PATIENT
  Age: 24 Year
  Sex: Male

DRUGS (3)
  1. ISONIAZID [Suspect]
     Indication: TUBERCULOSIS
     Dosage: 4 DF, DAILY
     Route: 048
  2. ETHAMBUTOL HYDROCHLORIDE [Concomitant]
     Dosage: 800 MG, DAILY
     Route: 048
  3. PYRIDOXINE HCL [Concomitant]

REACTIONS (2)
  - DRUG RASH WITH EOSINOPHILIA AND SYSTEMIC SYMPTOMS [None]
  - HEPATITIS ACUTE [None]
